FAERS Safety Report 9465106 (Version 3)
Quarter: 2016Q3

REPORT INFORMATION
  Report Type: Report from Study
  Country: CA (occurrence: CA)
  Receive Date: 20130819
  Receipt Date: 20160719
  Transmission Date: 20161109
  Serious: Yes (Hospitalization, Other)
  Sender: FDA-Public Use
  Company Number: CA-ROCHE-1253878

PATIENT
  Age: 72 Year
  Sex: Male
  Weight: 58 kg

DRUGS (32)
  1. RITUXAN [Suspect]
     Active Substance: RITUXIMAB
     Indication: RHEUMATOID ARTHRITIS
     Route: 042
     Dates: start: 2007
  2. BISACODYL. [Concomitant]
     Active Substance: BISACODYL
     Route: 054
  3. SENNOSIDES. [Concomitant]
     Active Substance: SENNOSIDES
     Dosage: 12-24 MG
     Route: 065
  4. ACETYLSALICYLIC ACID [Concomitant]
     Active Substance: ASPIRIN
     Route: 065
  5. SPIRIVA [Concomitant]
     Active Substance: TIOTROPIUM BROMIDE MONOHYDRATE
     Route: 065
  6. LANTUS [Concomitant]
     Active Substance: INSULIN GLARGINE
     Dosage: TAKEN AT NIGHT
     Route: 065
  7. METFORMIN [Concomitant]
     Active Substance: METFORMIN HYDROCHLORIDE
     Dosage: 500MG + 850MG
     Route: 065
  8. ATENOLOL. [Concomitant]
     Active Substance: ATENOLOL
     Route: 065
  9. CLONIDINE HCL [Concomitant]
     Active Substance: CLONIDINE HYDROCHLORIDE
  10. SULFASALAZINE. [Concomitant]
     Active Substance: SULFASALAZINE
     Route: 065
  11. ATORVASTATIN [Concomitant]
     Active Substance: ATORVASTATIN
     Route: 065
  12. MOMETASONE [Concomitant]
     Active Substance: MOMETASONE
  13. ZOPLICONE [Concomitant]
     Active Substance: ZOPICLONE
  14. BISOPROLOL FUMARATE. [Concomitant]
     Active Substance: BISOPROLOL FUMARATE
  15. TETRACYCLINE [Concomitant]
     Active Substance: TETRACYCLINE
  16. MORPHINE [Concomitant]
     Active Substance: MORPHINE
     Dosage: 5-10 MG
     Route: 065
  17. FERROUS SULFATE. [Concomitant]
     Active Substance: FERROUS SULFATE
  18. RANITIDINE. [Concomitant]
     Active Substance: RANITIDINE
  19. PANTOPRAZOLE [Concomitant]
     Active Substance: PANTOPRAZOLE SODIUM
     Route: 065
  20. MONTELUKAST [Concomitant]
     Active Substance: MONTELUKAST SODIUM
     Route: 065
  21. RAMIPRIL. [Concomitant]
     Active Substance: RAMIPRIL
  22. DEXAMETHASONE. [Concomitant]
     Active Substance: DEXAMETHASONE
  23. NYSTATIN. [Concomitant]
     Active Substance: NYSTATIN
     Route: 065
  24. TYLENOL WITH CODEINE [Concomitant]
     Active Substance: ACETAMINOPHEN\CODEINE PHOSPHATE
  25. AMLODIPINE [Concomitant]
     Active Substance: AMLODIPINE BESYLATE
     Route: 065
  26. RITUXAN [Suspect]
     Active Substance: RITUXIMAB
     Dosage: MOST RECENT DOSE RECEIVED ON 21/FEB/2012
     Route: 042
     Dates: start: 20110810
  27. PREDNISONE. [Suspect]
     Active Substance: PREDNISONE
     Indication: PRODUCT USED FOR UNKNOWN INDICATION
     Route: 065
     Dates: end: 2013
  28. CIPROFLOXACIN. [Concomitant]
     Active Substance: CIPROFLOXACIN
     Route: 065
  29. HYDROXYCHLOROQUINE [Concomitant]
     Active Substance: HYDROXYCHLOROQUINE
     Route: 065
  30. ACETAMINOPHEN. [Concomitant]
     Active Substance: ACETAMINOPHEN
     Dosage: 325-650
     Route: 065
  31. SALBUTAMOL [Concomitant]
     Active Substance: ALBUTEROL
     Dosage: 2 PUFFS
     Route: 065
  32. AZITHROMYCIN ANHYDROUS. [Concomitant]
     Active Substance: AZITHROMYCIN ANHYDROUS

REACTIONS (5)
  - Immunodeficiency [Unknown]
  - Pneumonia [Unknown]
  - Haemoglobin decreased [Unknown]
  - Rheumatoid arthritis [Not Recovered/Not Resolved]
  - Weight decreased [Unknown]

NARRATIVE: CASE EVENT DATE: 2013
